FAERS Safety Report 19128899 (Version 1)
Quarter: 2021Q2

REPORT INFORMATION
  Report Type: Spontaneous
  Country: IT (occurrence: IT)
  Receive Date: 20210413
  Receipt Date: 20210413
  Transmission Date: 20210717
  Serious: Yes (Other)
  Sender: FDA-Public Use
  Company Number: IT-ROCHE-2808111

PATIENT
  Age: 55 Year
  Sex: Male

DRUGS (7)
  1. RITUXIMAB. [Suspect]
     Active Substance: RITUXIMAB
     Indication: RENAL DISORDER
     Route: 042
     Dates: start: 20191121
  2. RITUXIMAB. [Suspect]
     Active Substance: RITUXIMAB
     Indication: NASAL POLYPS
  3. MYFENAX (ITALY) [Concomitant]
  4. RITUXIMAB. [Suspect]
     Active Substance: RITUXIMAB
     Indication: VASCULITIS
  5. RITUXIMAB. [Suspect]
     Active Substance: RITUXIMAB
     Indication: ASTHMA
  6. RITUXIMAB. [Suspect]
     Active Substance: RITUXIMAB
     Indication: LANGERHANS^ CELL HISTIOCYTOSIS
  7. MEDROL [Concomitant]
     Active Substance: METHYLPREDNISOLONE

REACTIONS (5)
  - Hyposmia [Recovered/Resolved]
  - Headache [Recovered/Resolved]
  - COVID-19 [Unknown]
  - Cough [Recovered/Resolved]
  - Pyrexia [Recovered/Resolved]

NARRATIVE: CASE EVENT DATE: 202003
